FAERS Safety Report 14604150 (Version 1)
Quarter: 2018Q1

REPORT INFORMATION
  Report Type: Spontaneous
  Country: US (occurrence: US)
  Receive Date: 20180305
  Receipt Date: 20180305
  Transmission Date: 20180509
  Serious: Yes (Other)
  Sender: FDA-Public Use
  Company Number: None

PATIENT
  Age: 60 Year
  Sex: Male
  Weight: 88.2 kg

DRUGS (3)
  1. NIASPAN 500 MG [Concomitant]
     Dates: start: 20160307, end: 20160407
  2. ATORVASTATIN 10 MG [Concomitant]
     Active Substance: ATORVASTATIN
     Dates: start: 20170403, end: 20170428
  3. ROSUVASTATIN. [Suspect]
     Active Substance: ROSUVASTATIN
     Indication: TYPE IIA HYPERLIPIDAEMIA
     Route: 048
     Dates: start: 20160203, end: 20160301

REACTIONS (3)
  - Muscle spasms [None]
  - Product substitution issue [None]
  - Abdominal discomfort [None]

NARRATIVE: CASE EVENT DATE: 20160203
